FAERS Safety Report 5708400-4 (Version None)
Quarter: 2008Q2

REPORT INFORMATION
  Report Type: 
  Country: None (occurrence: None)
  Receive Date: 20080417
  Receipt Date: 20080410
  Transmission Date: 20081010
  Serious: Yes (Death, Hospitalization)
  Sender: FDA-Public Use
  Company Number: US-ELI_LILLY_AND_COMPANY-US200804001305

PATIENT
  Sex: Female
  Weight: 98 kg

DRUGS (3)
  1. BYETTA [Suspect]
     Indication: DIABETES MELLITUS
     Dosage: 5 UG, 2/D
     Route: 058
     Dates: start: 20080102, end: 20080123
  2. METFORMIN HCL [Concomitant]
     Indication: DIABETES MELLITUS
  3. DEXAMETHASONE TAB [Concomitant]

REACTIONS (4)
  - DIABETIC KETOACIDOSIS [None]
  - GRAFT VERSUS HOST DISEASE [None]
  - LEUKAEMIA RECURRENT [None]
  - PANCREATITIS ACUTE [None]
